FAERS Safety Report 10682882 (Version 2)
Quarter: 2014Q4

REPORT INFORMATION
  Report Type: Report from Study
  Country: US (occurrence: US)
  Receive Date: 20141230
  Receipt Date: 20141230
  Transmission Date: 20150529
  Serious: Yes (Other)
  Sender: FDA-Public Use
  Company Number: PHHY2011US06239

PATIENT
  Age: 55 Year
  Sex: Female

DRUGS (1)
  1. NEORAL [Suspect]
     Active Substance: CYCLOSPORINE
     Indication: RENAL TRANSPLANT
     Dosage: 75 MG, BID
     Route: 048
     Dates: start: 1990

REACTIONS (7)
  - Back pain [Unknown]
  - Spinal fracture [Unknown]
  - Musculoskeletal stiffness [Unknown]
  - Red blood cell count decreased [Unknown]
  - Pneumonia [Unknown]
  - Renal failure [Unknown]
  - Malaise [Unknown]

NARRATIVE: CASE EVENT DATE: 201407
